FAERS Safety Report 6280167-3 (Version None)
Quarter: 2009Q3

REPORT INFORMATION
  Report Type: 
  Country: None (occurrence: None)
  Receive Date: 20090723
  Receipt Date: 20090714
  Transmission Date: 20100115
  Serious: Yes (Other)
  Sender: FDA-Public Use
  Company Number: PHHY2009BR29579

PATIENT
  Sex: Female
  Weight: 69 kg

DRUGS (3)
  1. TEGRETOL [Suspect]
     Indication: CONVULSION
     Dosage: 400 MG, QD
     Route: 048
  2. TEGRETOL [Suspect]
     Dosage: 400 MG, BID
     Route: 048
  3. TEGRETOL [Suspect]
     Dosage: TWO AND HALF TABLET (400 MG) PER DAY
     Route: 048

REACTIONS (3)
  - CONVULSION [None]
  - INFLUENZA [None]
  - THYROID NEOPLASM [None]
